FAERS Safety Report 9853435 (Version 3)
Quarter: 2014Q1

REPORT INFORMATION
  Report Type: Spontaneous
  Country: CA (occurrence: CA)
  Receive Date: 20140129
  Receipt Date: 20140210
  Transmission Date: 20141002
  Serious: Yes (Death, Hospitalization)
  Sender: FDA-Public Use
  Company Number: CA-GLAXOSMITHKLINE-A1047591A

PATIENT
  Sex: Female
  Weight: 45.8 kg

DRUGS (2)
  1. FLOLAN [Suspect]
     Indication: PULMONARY HYPERTENSION
     Route: 050
     Dates: start: 20100510
  2. FLOLAN DILUENT [Suspect]
     Indication: PULMONARY HYPERTENSION
     Route: 065

REACTIONS (5)
  - Dyspnoea exertional [Not Recovered/Not Resolved]
  - Dyspnoea [Unknown]
  - General physical health deterioration [Unknown]
  - Death [Fatal]
  - Pulmonary hypertension [Fatal]
